FAERS Safety Report 18569493 (Version 1)
Quarter: 2020Q4

REPORT INFORMATION
  Report Type: Spontaneous
  Country: US (occurrence: US)
  Receive Date: 20201201
  Receipt Date: 20201201
  Transmission Date: 20210114
  Serious: Yes (Hospitalization)
  Sender: FDA-Public Use
  Company Number: None

PATIENT
  Age: 6 Year
  Sex: Male
  Weight: 17.6 kg

DRUGS (11)
  1. ABATACEPT [Suspect]
     Active Substance: ABATACEPT
     Indication: PROPHYLAXIS
     Dosage: ?          OTHER FREQUENCY:DAY -1,+5,+14, +28;?
     Dates: start: 20200823, end: 20201119
  2. BACTRIM [Concomitant]
     Active Substance: SULFAMETHOXAZOLE\TRIMETHOPRIM
     Dates: start: 20200919
  3. MORPHINE [Concomitant]
     Active Substance: MORPHINE
     Dates: start: 20201126
  4. RITUXIMAB. [Concomitant]
     Active Substance: RITUXIMAB
     Dates: start: 20201118
  5. ABATACEPT [Suspect]
     Active Substance: ABATACEPT
     Indication: GRAFT VERSUS HOST DISEASE
     Dosage: ?          OTHER FREQUENCY:DAY -1,+5,+14, +28;?
     Dates: start: 20200823, end: 20201119
  6. ONDANESTRON [Concomitant]
     Dates: start: 20201119
  7. VALTREX [Concomitant]
     Active Substance: VALACYCLOVIR HYDROCHLORIDE
     Dates: start: 20200921
  8. TACROLIMUS. [Concomitant]
     Active Substance: TACROLIMUS
     Dates: start: 20200831
  9. VANCOMYCIN [Concomitant]
     Active Substance: VANCOMYCIN
     Dates: start: 20201124
  10. CEFEPIME [Concomitant]
     Active Substance: CEFEPIME HYDROCHLORIDE
     Dates: start: 20201118
  11. VORICONAZOLE. [Concomitant]
     Active Substance: VORICONAZOLE
     Dates: start: 20201109

REACTIONS (8)
  - Nausea [None]
  - Pyrexia [None]
  - Abdominal pain upper [None]
  - Pain in extremity [None]
  - Decreased appetite [None]
  - Weight decreased [None]
  - Vomiting [None]
  - Epstein-Barr virus infection [None]

NARRATIVE: CASE EVENT DATE: 20201118
